FAERS Safety Report 20875473 (Version 3)
Quarter: 2022Q2

REPORT INFORMATION
  Report Type: Report from Study
  Country: US (occurrence: US)
  Receive Date: 20220526
  Receipt Date: 20220614
  Transmission Date: 20220720
  Serious: No
  Sender: FDA-Public Use
  Company Number: US-NOVARTISTESTPH-NVSC2022US120762

PATIENT
  Sex: Male

DRUGS (7)
  1. MAYZENT [Suspect]
     Active Substance: SIPONIMOD
     Indication: Multiple sclerosis
     Dosage: UNK
     Route: 065
  2. MAYZENT [Suspect]
     Active Substance: SIPONIMOD
     Dosage: 2 MG
     Route: 065
  3. MAYZENT [Suspect]
     Active Substance: SIPONIMOD
     Dosage: 1 DOSAGE FORM,  (0.25 MG) QD (ON DAY 1)
     Route: 048
  4. MAYZENT [Suspect]
     Active Substance: SIPONIMOD
     Dosage: 1 DOSAGE FORM, (0.25 MG) QD (ON DAY 2)
     Route: 048
  5. MAYZENT [Suspect]
     Active Substance: SIPONIMOD
     Dosage: 2 DOSAGE FORM, (0.25 MG) QD (ON DAY 3)
     Route: 048
  6. MAYZENT [Suspect]
     Active Substance: SIPONIMOD
     Dosage: 3 DOSAGE FORM, (0.25 MG) QD (ON DAY 4)
     Route: 048
  7. MAYZENT [Suspect]
     Active Substance: SIPONIMOD
     Dosage: 4 DOSAGE FORM, (0.25 MG) QD (THEREAFTER)
     Route: 048

REACTIONS (2)
  - Blood disorder [Unknown]
  - White blood cell count decreased [Unknown]
